FAERS Safety Report 4988376-8 (Version None)
Quarter: 2006Q2

REPORT INFORMATION
  Report Type: 
  Country: None (occurrence: None)
  Receive Date: 20060502
  Receipt Date: 20060421
  Transmission Date: 20061013
  Serious: Yes (Other)
  Sender: FDA-Public Use
  Company Number: US-JNJFOC-20060404986

PATIENT
  Sex: Female
  Weight: 61.24 kg

DRUGS (3)
  1. REMINYL [Suspect]
     Indication: DEMENTIA
  2. ARICEPT [Concomitant]
     Indication: DEMENTIA
  3. TENORMIN [Concomitant]

REACTIONS (3)
  - DEPRESSED LEVEL OF CONSCIOUSNESS [None]
  - HEMIPARESIS [None]
  - NAUSEA [None]
